FAERS Safety Report 20863584 (Version 2)
Quarter: 2022Q2

REPORT INFORMATION
  Report Type: Spontaneous
  Country: US (occurrence: US)
  Receive Date: 20220523
  Receipt Date: 20220624
  Transmission Date: 20220721
  Serious: No
  Sender: FDA-Public Use
  Company Number: US-BRISTOL-MYERS SQUIBB COMPANY-2022-041337

PATIENT
  Age: 76 Year
  Sex: Female
  Weight: 62.142 kg

DRUGS (4)
  1. REVLIMID [Suspect]
     Active Substance: LENALIDOMIDE
     Indication: Plasma cell myeloma
     Route: 048
     Dates: start: 20220509
  2. REVLIMID [Suspect]
     Active Substance: LENALIDOMIDE
     Dosage: DAILY DAYS 1-21 EVERY 28 DAYS
     Route: 048
     Dates: start: 20220509
  3. EMPLICITI [Suspect]
     Active Substance: ELOTUZUMAB
     Indication: Product used for unknown indication
     Route: 065
     Dates: start: 20220509
  4. DEXAMETHASONE [Suspect]
     Active Substance: DEXAMETHASONE
     Indication: Product used for unknown indication
     Route: 065
     Dates: start: 20220509

REACTIONS (8)
  - Oropharyngeal pain [Unknown]
  - Pain [Unknown]
  - Diarrhoea [Unknown]
  - Muscular weakness [Unknown]
  - Balance disorder [Unknown]
  - Back pain [Unknown]
  - Myalgia [Unknown]
  - Dysphonia [Unknown]

NARRATIVE: CASE EVENT DATE: 20220509
